FAERS Safety Report 7726187-0 (Version None)
Quarter: 2011Q3

REPORT INFORMATION
  Report Type: 
  Country: None (occurrence: None)
  Receive Date: 20110902
  Receipt Date: 20110824
  Transmission Date: 20111222
  Serious: Yes (Hospitalization)
  Sender: FDA-Public Use
  Company Number: PHHY2011MX75806

PATIENT
  Age: 56 Year
  Sex: Female

DRUGS (4)
  1. LOSARTAN [Concomitant]
  2. DILTIAZEM [Concomitant]
  3. HORMONES NOS [Concomitant]
  4. ACETYLSALICYLIC ACID SRT [Suspect]
     Dosage: 100 MG, DAILY

REACTIONS (18)
  - DEHYDRATION [None]
  - BLEEDING TIME PROLONGED [None]
  - ABDOMINAL DISTENSION [None]
  - WHITE BLOOD CELL COUNT INCREASED [None]
  - CHILLS [None]
  - HEPATIC HAEMATOMA [None]
  - BLOOD PRESSURE INCREASED [None]
  - BLOOD TRIGLYCERIDES INCREASED [None]
  - ARTHRALGIA [None]
  - RESPIRATORY RATE INCREASED [None]
  - NAUSEA [None]
  - OXYGEN SATURATION DECREASED [None]
  - DYSPNOEA [None]
  - ABDOMINAL PAIN [None]
  - PALLOR [None]
  - MYALGIA [None]
  - ASTHENIA [None]
  - MALAISE [None]
